FAERS Safety Report 9767693 (Version 1)
Quarter: 2013Q4

REPORT INFORMATION
  Report Type: Spontaneous
  Country: US (occurrence: US)
  Receive Date: 20131217
  Receipt Date: 20131217
  Transmission Date: 20140711
  Serious: Yes (Hospitalization, Other)
  Sender: FDA-Public Use
  Company Number: US-JNJFOC-20131208202

PATIENT
  Age: 75 Year
  Sex: Male

DRUGS (1)
  1. RIVAROXABAN [Suspect]
     Indication: CEREBROVASCULAR ACCIDENT PROPHYLAXIS
     Route: 048

REACTIONS (7)
  - Lactic acidosis [Unknown]
  - Gastrointestinal haemorrhage [Recovered/Resolved]
  - Renal failure acute [Unknown]
  - Gastritis erosive [Unknown]
  - Gastrointestinal arteriovenous malformation [Unknown]
  - Prothrombin level increased [Recovered/Resolved]
  - Activated partial thromboplastin time prolonged [Recovered/Resolved]
